FAERS Safety Report 8262149-5 (Version None)
Quarter: 2012Q2

REPORT INFORMATION
  Report Type: 
  Country: None (occurrence: None)
  Receive Date: 20120405
  Receipt Date: 20120321
  Transmission Date: 20120825
  Serious: Yes (Hospitalization)
  Sender: FDA-Public Use
  Company Number: FR-ROCHE-1045608

PATIENT
  Sex: Female

DRUGS (11)
  1. PREDNISONE [Suspect]
     Indication: RENAL TRANSPLANT
     Route: 048
     Dates: start: 20111203, end: 20120211
  2. PROPYLTHIOURACIL [Suspect]
     Indication: HYPERTHYROIDISM
     Dates: start: 20120131, end: 20120204
  3. CARBIMAZOLE [Suspect]
     Indication: HYPERTHYROIDISM
     Dates: start: 20120205, end: 20120207
  4. AMIODARONE HYDROCHLORIDE [Suspect]
     Dates: start: 20120111, end: 20120217
  5. AMIODARONE HYDROCHLORIDE [Suspect]
     Indication: ATRIAL FIBRILLATION
     Dates: start: 20111101, end: 20111101
  6. BISOPROLOL FUMARATE [Concomitant]
     Dates: start: 20111101
  7. MYCOPHENOLATE MOFETIL (CELLCEPT) [Suspect]
     Indication: RENAL TRANSPLANT
     Route: 048
     Dates: start: 20111107
  8. PREDNISOLONE SODIUM METASULFOBENZOATE [Suspect]
     Indication: RENAL TRANSPLANT
     Route: 048
     Dates: start: 20120212
  9. PIPERACILLIN AND PIPERACILLIN SODIUM AND TAZOBACTAM SODIUM [Suspect]
     Indication: PRODUCT USED FOR UNKNOWN INDICATION
     Dates: start: 20120207, end: 20120214
  10. LEVOFLOXACIN [Suspect]
     Indication: PRODUCT USED FOR UNKNOWN INDICATION
     Dates: start: 20120207, end: 20120215
  11. EVEROLIMUS [Suspect]
     Indication: RENAL TRANSPLANT
     Route: 048
     Dates: start: 20111217, end: 20120207

REACTIONS (4)
  - HYPERTHYROIDISM [None]
  - NEUTROPENIA [None]
  - HYPERGLYCAEMIA [None]
  - THROMBOCYTOPENIA [None]
